FAERS Safety Report 12734010 (Version 1)
Quarter: 2016Q3

REPORT INFORMATION
  Report Type: Report from Study
  Country: JP (occurrence: JP)
  Receive Date: 20160912
  Receipt Date: 20160912
  Transmission Date: 20161109
  Serious: Yes (Hospitalization)
  Sender: FDA-Public Use
  Company Number: JP-AMGEN-JPNCT2016122980

PATIENT
  Age: 83 Year
  Sex: Male
  Weight: 41 kg

DRUGS (27)
  1. RABEPRAZOLE NA [Concomitant]
     Active Substance: RABEPRAZOLE SODIUM
     Indication: CHRONIC GASTRITIS
     Dosage: 10 MG, UNK
     Route: 048
     Dates: end: 20150826
  2. KAMIKIHITO [Concomitant]
     Indication: PERNICIOUS ANAEMIA
     Dosage: 7.5 G, UNK
     Route: 048
     Dates: end: 20150826
  3. CALONAL [Concomitant]
     Active Substance: ACETAMINOPHEN
     Indication: BACK PAIN
     Dosage: 800 MG, UNK
     Route: 048
     Dates: start: 20150817
  4. CEFTRIAXONE. [Concomitant]
     Active Substance: CEFTRIAXONE
     Indication: FEBRILE NEUTROPENIA
     Dosage: 2 G, UNK
     Route: 042
     Dates: start: 20151106, end: 20151110
  5. PRIMOBOLAN-DEPOT [Concomitant]
     Active Substance: METHENOLONE ENANTHATE
     Indication: OSTEOPOROSIS
     Dosage: 5 MG, UNK
     Route: 048
     Dates: start: 20150911
  6. MIYA-BM [Concomitant]
     Active Substance: CLOSTRIDIUM BUTYRICUM SPORES STRAIN M-55
     Indication: ENTEROCOLITIS
     Dosage: 2 DF, UNK
     Route: 048
     Dates: start: 20150811
  7. FLUMARIN [Concomitant]
     Active Substance: FLOMOXEF SODIUM
     Indication: FEBRILE NEUTROPENIA
     Dosage: 2 G, UNK
     Route: 042
     Dates: start: 20160402, end: 20160411
  8. CEFMETAZOLE SODIUM [Concomitant]
     Active Substance: CEFMETAZOLE SODIUM
     Indication: FEBRILE NEUTROPENIA
     Dosage: 2 G, UNK
     Route: 042
     Dates: start: 20160701, end: 20160714
  9. MAGMITT [Concomitant]
     Active Substance: MAGNESIUM OXIDE
     Indication: CONSTIPATION
     Dosage: 1000 MG, UNK
     Route: 048
     Dates: start: 20150923, end: 20160211
  10. ATINES [Concomitant]
     Active Substance: EPERISONE HYDROCHLORIDE
     Indication: BACK PAIN
     Dosage: 100 MG, UNK
     Route: 048
     Dates: start: 20160411, end: 20160506
  11. BAKTAR [Concomitant]
     Active Substance: SULFAMETHOXAZOLE\TRIMETHOPRIM
     Indication: FEBRILE NEUTROPENIA
     Dosage: UNK
     Route: 048
     Dates: start: 20151111, end: 20160211
  12. CRAVIT [Concomitant]
     Active Substance: LEVOFLOXACIN
     Indication: FEBRILE NEUTROPENIA
     Dosage: 500 MG, UNK
     Route: 041
     Dates: start: 20150818, end: 20150824
  13. DARBEPOETIN ALFA [Suspect]
     Active Substance: DARBEPOETIN ALFA
     Indication: MYELODYSPLASTIC SYNDROME
     Dosage: 120 MUG, UNK
     Route: 058
     Dates: start: 20150817
  14. MOSAPRIDE [Concomitant]
     Active Substance: MOSAPRIDE
     Indication: CHRONIC GASTRITIS
     Dosage: 15 MG, UNK
     Route: 048
     Dates: end: 20150826
  15. POLAPREZINC [Concomitant]
     Active Substance: POLAPREZINC
     Indication: CHRONIC GASTRITIS
     Dosage: 1.5 G, UNK
     Route: 048
     Dates: end: 20150826
  16. ADONA [Concomitant]
     Active Substance: CARBAZOCHROME SODIUM SULFONATE
     Indication: ENTEROCOLITIS HAEMORRHAGIC
     Dosage: 50 MG, UNK
     Route: 065
     Dates: start: 20150821, end: 20150831
  17. SLOW-K [Concomitant]
     Active Substance: POTASSIUM CHLORIDE
     Indication: HYPOKALAEMIA
     Dosage: 600 MG, UNK
     Route: 048
     Dates: start: 20150817
  18. ETODOLAC. [Concomitant]
     Active Substance: ETODOLAC
     Indication: BACK PAIN
     Dosage: 400 MG, UNK
     Route: 048
     Dates: start: 20160411, end: 20160506
  19. GASTER [Concomitant]
     Active Substance: FAMOTIDINE
     Indication: CHRONIC GASTRITIS
     Dosage: 20 MG, UNK
     Route: 065
     Dates: start: 20150824, end: 20150831
  20. PREDONINE [Suspect]
     Active Substance: PREDNISOLONE\PREDNISOLONE ACETATE\PREDNISOLONE SODIUM SUCCINATE
     Indication: MYELODYSPLASTIC SYNDROME
     Dosage: 10 MG, UNK
     Route: 048
     Dates: start: 20150911
  21. FOLIAMIN [Concomitant]
     Active Substance: FOLIC ACID
     Indication: PERNICIOUS ANAEMIA
     Dosage: 15 MG, UNK
     Route: 048
     Dates: end: 20150826
  22. NEXIUM [Concomitant]
     Active Substance: ESOMEPRAZOLE MAGNESIUM
     Indication: CHRONIC GASTRITIS
     Dosage: 20 MG, UNK
     Route: 048
     Dates: start: 20150821, end: 20150831
  23. FUNGUARD [Concomitant]
     Active Substance: MICAFUNGIN SODIUM
     Indication: FUNGAL INFECTION
     Dosage: 75 MG, UNK
     Route: 042
     Dates: start: 20160402, end: 20160407
  24. ZOSYN [Concomitant]
     Active Substance: PIPERACILLIN SODIUM\TAZOBACTAM SODIUM
     Indication: FEBRILE NEUTROPENIA
     Dosage: 9 G, UNK
     Route: 042
     Dates: start: 20150825, end: 20150831
  25. FLUCONAZOLE. [Concomitant]
     Active Substance: FLUCONAZOLE
     Indication: FUNGAL INFECTION
     Dosage: 100 MG, UNK
     Route: 042
     Dates: start: 20150824, end: 20150831
  26. LANSOPRAZOLE. [Concomitant]
     Active Substance: LANSOPRAZOLE
     Indication: CHRONIC GASTRITIS
     Dosage: 15 MG, UNK
     Route: 048
     Dates: start: 20150901
  27. TOCOPHEROL [Concomitant]
     Active Substance: TOCOPHEROL
     Indication: PERIPHERAL VASCULAR DISORDER
     Dosage: 200 MG, UNK
     Route: 048
     Dates: start: 20151218, end: 20160630

REACTIONS (3)
  - Pyrexia [Recovering/Resolving]
  - Gamma-glutamyltransferase increased [Recovered/Resolved]
  - Pyrexia [Recovered/Resolved]

NARRATIVE: CASE EVENT DATE: 20160210
